FAERS Safety Report 9247682 (Version 1)
Quarter: 2013Q1

REPORT INFORMATION
  Report Type: Spontaneous
  Country: US (occurrence: None)
  Receive Date: 20130305
  Receipt Date: 20130305
  Transmission Date: 20140127
  Serious: Yes (Life-Threatening, Hospitalization, Other)
  Sender: FDA-Public Use
  Company Number: 163-21880-12062321

PATIENT
  Age: 70 Year
  Sex: Female

DRUGS (4)
  1. REVLIMID [Suspect]
     Indication: PLASMA CELL MYELOMA
     Dosage: 25 MG, ON M-W-F, PO
     Route: 048
     Dates: start: 20120508
  2. THALOMID (THALIDOMIDE) [Concomitant]
  3. ARANESP (DARBEPOETIN ALFA) (UNKNOWN) [Concomitant]
  4. NEUPOGEN (FILGRASTIM) (UNKNOWN) [Concomitant]

REACTIONS (3)
  - Platelet count decreased [None]
  - Diarrhoea [None]
  - Abdominal pain upper [None]
